FAERS Safety Report 26062383 (Version 1)
Quarter: 2025Q4

REPORT INFORMATION
  Report Type: Spontaneous
  Country: US (occurrence: US)
  Receive Date: 20251119
  Receipt Date: 20251119
  Transmission Date: 20260117
  Serious: No
  Sender: AZURITY PHARMACEUTICALS
  Company Number: US-AZURITY PHARMACEUTICALS, INC.-AZR202509-002980

PATIENT
  Sex: Male

DRUGS (1)
  1. DANZITEN [Suspect]
     Active Substance: NILOTINIB
     Indication: Chronic myeloid leukaemia
     Dosage: 71 MILLIGRAM, BID
     Route: 065
     Dates: start: 202508

REACTIONS (1)
  - Product dose omission issue [Unknown]
